FAERS Safety Report 5392539-X (Version None)
Quarter: 2007Q3

REPORT INFORMATION
  Report Type: 
  Country: None (occurrence: None)
  Receive Date: 20070720
  Receipt Date: 20070716
  Transmission Date: 20080115
  Serious: Yes (Hospitalization)
  Sender: FDA-Public Use
  Company Number: CH-SANOFI-SYNTHELABO-A01200707651

PATIENT
  Sex: Male

DRUGS (3)
  1. FLUOROURACIL [Concomitant]
     Indication: RECTAL CANCER
     Dosage: 400 MG/M2 IV BOLUS FOLLOWED BY 400 MG/M2 CONTINUOUS INFUSION
     Route: 042
     Dates: start: 20070702, end: 20070703
  2. ELOXATIN [Suspect]
     Indication: RECTAL CANCER
     Route: 042
     Dates: start: 20070702, end: 20070702
  3. LEUCOVORIN CALCIUM [Concomitant]
     Indication: RECTAL CANCER
     Route: 042
     Dates: start: 20070702

REACTIONS (1)
  - MESENTERIC VEIN THROMBOSIS [None]
